FAERS Safety Report 11972628 (Version 2)
Quarter: 2016Q1

REPORT INFORMATION
  Report Type: Report from Study
  Country: US (occurrence: US)
  Receive Date: 20160128
  Receipt Date: 20160229
  Transmission Date: 20160526
  Serious: Yes (Hospitalization)
  Sender: FDA-Public Use
  Company Number: US-ACTELION-A-US2016-130480

PATIENT
  Age: 4 Year
  Sex: Male

DRUGS (1)
  1. TRACLEER [Suspect]
     Active Substance: BOSENTAN
     Indication: PULMONARY HYPERTENSION
     Dosage: UNK, BID
     Route: 048

REACTIONS (6)
  - Drug administration error [Unknown]
  - Pneumonia [Recovered/Resolved]
  - Heart disease congenital [Unknown]
  - Respiratory syncytial virus infection [Unknown]
  - Hypokalaemia [Recovered/Resolved]
  - Thrombocytopenia [Recovered/Resolved]
